FAERS Safety Report 9087078 (Version 1)
Quarter: 2013Q1

REPORT INFORMATION
  Report Type: Report from Study
  Country: US (occurrence: US)
  Receive Date: 20130131
  Receipt Date: 20130131
  Transmission Date: 20140127
  Serious: No
  Sender: FDA-Public Use
  Company Number: US-ABBOTT-12P-163-0990748-00

PATIENT
  Age: 25 Year
  Sex: Female

DRUGS (3)
  1. HUMIRA [Suspect]
     Indication: CROHN^S DISEASE
  2. BOVRIL [Concomitant]
     Indication: CONTRACEPTION
     Dates: end: 20120930
  3. SEASONALE [Concomitant]
     Indication: CONTRACEPTION
     Dates: start: 20120930

REACTIONS (4)
  - Muscle spasms [Unknown]
  - Injection site erythema [Not Recovered/Not Resolved]
  - Injection site warmth [Not Recovered/Not Resolved]
  - Diarrhoea [Unknown]
